FAERS Safety Report 15470122 (Version 1)
Quarter: 2018Q4

REPORT INFORMATION
  Report Type: Spontaneous
  Country: US (occurrence: US)
  Receive Date: 20181005
  Receipt Date: 20181005
  Transmission Date: 20190205
  Serious: Yes (Hospitalization)
  Sender: FDA-Public Use
  Company Number: US-ACTELION-A-US2018-179642

PATIENT
  Age: 32 Year
  Sex: Female
  Weight: 61.68 kg

DRUGS (3)
  1. LETAIRIS [Concomitant]
     Active Substance: AMBRISENTAN
  2. ADEMPAS [Concomitant]
     Active Substance: RIOCIGUAT
  3. VELETRI [Suspect]
     Active Substance: EPOPROSTENOL
     Indication: PULMONARY HYPERTENSION
     Dosage: 70 NG/KG, PER MIN
     Route: 042

REACTIONS (4)
  - Central venous catheterisation [Unknown]
  - Catheter site swelling [Unknown]
  - Catheter site pain [Unknown]
  - Vascular device infection [Unknown]
